FAERS Safety Report 8548730-4 (Version None)
Quarter: 2012Q3

REPORT INFORMATION
  Report Type: 
  Country: None (occurrence: None)
  Receive Date: 20120730
  Receipt Date: 20120723
  Transmission Date: 20120928
  Serious: Yes (Hospitalization, Other)
  Sender: FDA-Public Use
  Company Number: PHHY2012BR064727

PATIENT
  Age: 59 Year
  Sex: Male

DRUGS (2)
  1. METFORMIN HCL [Suspect]
     Indication: DIABETES MELLITUS
     Dosage: 1 DF, DAILY
  2. AMLODOPINE BESYLATE AND VALSARTAN [Suspect]
     Indication: HYPERTENSION
     Dosage: 1 DF (VALS 320 MG, AMLO 5 MG),DAILY
     Dates: end: 20120701

REACTIONS (3)
  - BLOOD PRESSURE SYSTOLIC INCREASED [None]
  - PNEUMONIA [None]
  - CARDIOMEGALY [None]
